FAERS Safety Report 10429555 (Version 1)
Quarter: 2014Q3

REPORT INFORMATION
  Report Type: Spontaneous
  Country: CH (occurrence: CH)
  Receive Date: 20140904
  Receipt Date: 20140904
  Transmission Date: 20150326
  Serious: Yes (Life-Threatening)
  Sender: FDA-Public Use
  Company Number: CH-JNJFOC-20140823406

PATIENT
  Age: 35 Year
  Sex: Male

DRUGS (16)
  1. DUROGESIC [Suspect]
     Active Substance: FENTANYL
     Indication: ABDOMINAL PAIN
     Route: 062
     Dates: start: 201402, end: 20140328
  2. TARGIN [Concomitant]
     Active Substance: NALOXONE HYDROCHLORIDE\OXYCODONE HYDROCHLORIDE
     Dosage: 20/10 MG
     Route: 065
  3. LANTUS [Concomitant]
     Active Substance: INSULIN GLARGINE
     Route: 065
  4. BECOZYME [Concomitant]
     Route: 065
  5. DUROGESIC [Suspect]
     Active Substance: FENTANYL
     Indication: ABDOMINAL PAIN
     Route: 062
  6. DUROGESIC [Suspect]
     Active Substance: FENTANYL
     Indication: ABDOMINAL PAIN
     Route: 062
  7. OXYNORM [Concomitant]
     Active Substance: OXYCODONE HYDROCHLORIDE
     Route: 065
  8. LISINOPRIL. [Concomitant]
     Active Substance: LISINOPRIL
     Route: 065
  9. DUROGESIC [Suspect]
     Active Substance: FENTANYL
     Indication: ABDOMINAL PAIN
     Route: 062
  10. LYRICA [Concomitant]
     Active Substance: PREGABALIN
     Route: 065
  11. CRESTOR [Concomitant]
     Active Substance: ROSUVASTATIN CALCIUM
     Route: 065
  12. LIPANTHYL [Concomitant]
     Active Substance: FENOFIBRATE
     Route: 065
  13. OXYNORM [Concomitant]
     Active Substance: OXYCODONE HYDROCHLORIDE
     Route: 065
  14. TARGIN [Concomitant]
     Active Substance: NALOXONE HYDROCHLORIDE\OXYCODONE HYDROCHLORIDE
     Dosage: 10/5 MG
     Route: 065
  15. NEXIUM [Concomitant]
     Active Substance: ESOMEPRAZOLE MAGNESIUM
     Route: 065
  16. BENERVA [Concomitant]
     Active Substance: THIAMINE
     Route: 065

REACTIONS (3)
  - Dizziness [Recovered/Resolved]
  - Respiratory arrest [Recovered/Resolved]
  - Visual impairment [Recovered/Resolved]

NARRATIVE: CASE EVENT DATE: 20140328
